FAERS Safety Report 12460434 (Version 2)
Quarter: 2016Q2

REPORT INFORMATION
  Report Type: Spontaneous
  Country: US (occurrence: US)
  Receive Date: 20160613
  Receipt Date: 20160627
  Transmission Date: 20160815
  Serious: No
  Sender: FDA-Public Use
  Company Number: US-PFIZER INC-2016266871

PATIENT
  Age: 72 Year
  Sex: Female

DRUGS (22)
  1. WARFARIN [Concomitant]
     Active Substance: WARFARIN
     Dosage: 2 MG, 1X/DAY
  2. GABAPENTIN. [Concomitant]
     Active Substance: GABAPENTIN
     Dosage: 300 MG, 3X/DAY ONE IN MORNING, AFTERNOON AND AT NIGHT
  3. MAGNESIUM OXIDE. [Concomitant]
     Active Substance: MAGNESIUM OXIDE
     Dosage: 400 MG, 1X/DAY ONE IN MORNING
  4. TIKOSYN [Suspect]
     Active Substance: DOFETILIDE
     Dosage: 500 UG, 2X/DAY
  5. LASIX [Concomitant]
     Active Substance: FUROSEMIDE
     Dosage: 40 MG, 2X/DAY ONE IN MORNING AND ONE IN AFTERNOON
  6. TYLENOL PM [Concomitant]
     Active Substance: ACETAMINOPHEN\DIPHENHYDRAMINE
     Dosage: 1 DF, 1X/DAY IN NIGHT
  7. VITAMIN B12 [Concomitant]
     Active Substance: CYANOCOBALAMIN
     Dosage: 1000 UG, 1X/DAY IN THE MORNING
  8. SPIRIVA [Concomitant]
     Active Substance: TIOTROPIUM BROMIDE MONOHYDRATE
     Dosage: 2 DF, 1X/DAY IN THE MORNING
  9. CLEARLAX [Concomitant]
     Active Substance: POLYETHYLENE GLYCOL 3350
     Dosage: ONE TEASPOON IN THE MORNING AFTER COFFEE
  10. CARVEDILOL. [Concomitant]
     Active Substance: CARVEDILOL
     Dosage: 25 MG, 2X/DAY ONE IN MORNING AND ONE IN NIGHT
  11. ALEVE [Concomitant]
     Active Substance: NAPROXEN SODIUM
     Dosage: 2 DF, 1X/DAY IN MORNING
  12. MULTIVITAMIN AND MINERAL SUPPLEMENT [Concomitant]
     Active Substance: MINERALS\VITAMINS
     Dosage: 1 DF, 1X/DAY IN THE MORNING
  13. CALCIUM 500+D [Concomitant]
     Active Substance: CALCIUM\VITAMIN D
     Dosage: 1 DF, 1X/DAY AT NIGHT
  14. NATURAL VITAMIN C [Concomitant]
     Dosage: 500 MG, 1X/DAY IN MORNING
  15. POTASSIUM CHLORIDE. [Concomitant]
     Active Substance: POTASSIUM CHLORIDE
     Dosage: 1 DF, 2X/DAY MORNING AND AFTERNOON
  16. VITAMIN D [Concomitant]
     Active Substance: CHOLECALCIFEROL
     Dosage: 1 DF, 1X/DAY IN THE MORNING
  17. AMLODIPINE [Concomitant]
     Active Substance: AMLODIPINE BESYLATE
     Dosage: 5 MG, 1X/DAY
  18. LEVOTHYROXINE. [Concomitant]
     Active Substance: LEVOTHYROXINE
     Dosage: 100 UG, 1X/DAY
  19. PRAVASTATIN [Concomitant]
     Active Substance: PRAVASTATIN\PRAVASTATIN SODIUM
     Dosage: 40 MG, 1X/DAY AT NIGHT
  20. TYLENOL [Concomitant]
     Active Substance: ACETAMINOPHEN
     Dosage: 2 DF, 1X/DAY IN THE AFTERNOON
  21. ASPIRIN. [Concomitant]
     Active Substance: ASPIRIN
     Dosage: 81 MG, 1X/DAY AT NIGHT
  22. FIBER POWDER SUGAR FREE 100% NATURAL SUPPLEMENT [Concomitant]
     Dosage: 1 TEASPOON IN THE MORNING WITH COFFEE

REACTIONS (1)
  - Dyspnoea [Not Recovered/Not Resolved]
